FAERS Safety Report 19398526 (Version 1)
Quarter: 2021Q2

REPORT INFORMATION
  Report Type: Spontaneous
  Country: US (occurrence: US)
  Receive Date: 20210609
  Receipt Date: 20210609
  Transmission Date: 20210717
  Serious: Yes (Death)
  Sender: FDA-Public Use
  Company Number: None

PATIENT
  Age: 68 Year
  Sex: Female

DRUGS (13)
  1. SYMBICORT [Concomitant]
     Active Substance: BUDESONIDE\FORMOTEROL FUMARATE DIHYDRATE
  2. ATORVASTATIN 10 MG TAB [Concomitant]
  3. PANTOPRAZOLE 40 MG TAB [Concomitant]
  4. VITAMIN B12 100MCG TAB [Concomitant]
  5. AMIODARONE 100 MG TAB [Concomitant]
  6. MAGNESIUM OXIDE 400 MG TAB [Concomitant]
  7. ONDANSETRON 4MG/2ML VIAL [Concomitant]
  8. ZOLEDRONIC ACID 4 MG/5 ML VIAL [Suspect]
     Active Substance: ZOLEDRONIC ACID
     Indication: LUNG NEOPLASM MALIGNANT
     Dosage: ?          OTHER FREQUENCY:EVERY 4 WEEKS;?
     Route: 042
  9. ELIQUIS 2.5 MG TAB [Concomitant]
  10. GABAPENTIN 100 MG CAP [Concomitant]
  11. ACETAMINOPHEN. [Concomitant]
     Active Substance: ACETAMINOPHEN
  12. DILTIAZEM TAB [Concomitant]
  13. NAPROXEN. [Concomitant]
     Active Substance: NAPROXEN

REACTIONS (1)
  - Death [None]

NARRATIVE: CASE EVENT DATE: 20210519
